FAERS Safety Report 7306637-4 (Version None)
Quarter: 2011Q1

REPORT INFORMATION
  Report Type: 
  Country: None (occurrence: None)
  Receive Date: 20110222
  Receipt Date: 20110215
  Transmission Date: 20110831
  Serious: Yes (Other)
  Sender: FDA-Public Use
  Company Number: PL-TEVA-267778ISR

PATIENT
  Sex: Female
  Weight: 18 kg

DRUGS (4)
  1. ALBUTEROL [Concomitant]
     Dates: start: 20110212, end: 20110215
  2. AZITHROMYCIN [Suspect]
     Route: 048
     Dates: start: 20110212, end: 20110214
  3. BUDESONIDE [Concomitant]
     Dates: start: 20110212, end: 20110215
  4. PARACETAMOL [Concomitant]
     Route: 054
     Dates: start: 20110212, end: 20110212

REACTIONS (2)
  - HYPOTHERMIA [None]
  - TREMOR [None]
